FAERS Safety Report 16911427 (Version 1)
Quarter: 2019Q4

REPORT INFORMATION
  Report Type: Spontaneous
  Country: US (occurrence: US)
  Receive Date: 20190821
  Receipt Date: 20190821
  Transmission Date: 20200122
  Serious: No
  Sender: FDA-Public Use
  Company Number: None

PATIENT
  Age: 24 Year
  Sex: Female

DRUGS (1)
  1. HUMIRA [Suspect]
     Active Substance: ADALIMUMAB
     Indication: CYCLITIS
     Route: 058
     Dates: start: 201907

REACTIONS (3)
  - Pain in extremity [None]
  - Musculoskeletal stiffness [None]
  - Back pain [None]

NARRATIVE: CASE EVENT DATE: 201907
